FAERS Safety Report 22641775 (Version 1)
Quarter: 2023Q2

REPORT INFORMATION
  Report Type: Spontaneous
  Country: CN (occurrence: CN)
  Receive Date: 20230626
  Receipt Date: 20230626
  Transmission Date: 20230721
  Serious: Yes (Other)
  Sender: FDA-Public Use
  Company Number: CN-AMGEN-CHNSP2023108695

PATIENT
  Age: 37 Year
  Sex: Female

DRUGS (1)
  1. XGEVA [Suspect]
     Active Substance: DENOSUMAB
     Indication: Bone giant cell tumour
     Dosage: 120 MILLIGRAM (ON DAYS 1, 8, 15, AND 29)
     Route: 058

REACTIONS (2)
  - Bone giant cell tumour [Recovered/Resolved]
  - Bone disorder [Unknown]
